FAERS Safety Report 7928215-6 (Version None)
Quarter: 2011Q4

REPORT INFORMATION
  Report Type: 
  Country: None (occurrence: None)
  Receive Date: 20111118
  Receipt Date: 20111114
  Transmission Date: 20120403
  Serious: Yes (Hospitalization)
  Sender: FDA-Public Use
  Company Number: SE-JNJFOC-20111104422

PATIENT
  Sex: Male

DRUGS (2)
  1. BICALUTAMIDE [Concomitant]
     Route: 065
  2. IBUPROFEN [Suspect]
     Indication: MUSCULOSKELETAL PAIN
     Route: 048
     Dates: start: 20110901, end: 20110901

REACTIONS (2)
  - SYNCOPE [None]
  - DUODENAL ULCER HAEMORRHAGE [None]
